FAERS Safety Report 16536587 (Version 5)
Quarter: 2020Q2

REPORT INFORMATION
  Report Type: Report from Study
  Country: FR (occurrence: FR)
  Receive Date: 20190706
  Receipt Date: 20200416
  Transmission Date: 20200713
  Serious: Yes (Death, Congenital Anomaly, Other)
  Sender: FDA-Public Use
  Company Number: FR-AUROBINDO-AUR-APL-2019-038824

PATIENT
  Sex: Female
  Weight: 1.96 kg

DRUGS (17)
  1. NEVIRAPINE. [Suspect]
     Active Substance: NEVIRAPINE
     Indication: HIV INFECTION
     Dosage: 400 MILLIGRAM, ONCE A DAY
     Route: 064
     Dates: start: 20050704
  2. EFAVIRENZ. [Suspect]
     Active Substance: EFAVIRENZ
     Dosage: 600 MILLIGRAM, ONCE A DAY
     Route: 064
     Dates: start: 20050523, end: 20050908
  3. COMBIVIR [Suspect]
     Active Substance: LAMIVUDINE\ZIDOVUDINE
     Indication: HIV INFECTION
     Dosage: 200 MILLIGRAM, ONCE A DAY
     Route: 064
     Dates: start: 20050908
  4. EFAVIRENZ. [Suspect]
     Active Substance: EFAVIRENZ
     Indication: HIV INFECTION
     Dosage: 600 MILLIGRAM, ONCE A DAY
     Route: 064
     Dates: start: 20050513, end: 20050908
  5. VIRAMUNE [Suspect]
     Active Substance: NEVIRAPINE
     Indication: HIV INFECTION
     Dosage: 400 MILLIGRAM, ONCE A DAY
     Route: 064
     Dates: start: 20050620
  6. EFAVIRENZ. [Suspect]
     Active Substance: EFAVIRENZ
     Dosage: 600 MILLIGRAM, ONCE A DAY
     Route: 064
     Dates: start: 20050813, end: 20050908
  7. VIRAMUNE [Suspect]
     Active Substance: NEVIRAPINE
     Dosage: 400 MILLIGRAM, ONCE A DAY
     Route: 064
     Dates: start: 20050704
  8. KALETRA [Suspect]
     Active Substance: LOPINAVIR\RITONAVIR
     Indication: HIV INFECTION
     Dosage: UNK, 3 WEEK
     Route: 064
  9. VIDEX [Suspect]
     Active Substance: DIDANOSINE
     Dosage: UNK
     Route: 064
     Dates: start: 20050813, end: 20050908
  10. EMTRIVA [Suspect]
     Active Substance: EMTRICITABINE
     Dosage: UNK
     Route: 064
     Dates: start: 20050813
  11. FTC [Suspect]
     Active Substance: EMTRICITABINE
     Indication: PRODUCT USED FOR UNKNOWN INDICATION
     Dosage: UNK
     Route: 064
     Dates: start: 20050523
  12. NEVIRAPINE. [Suspect]
     Active Substance: NEVIRAPINE
     Dosage: 400 MILLIGRAM, ONCE A DAY
     Route: 064
     Dates: start: 20050813
  13. VIDEX [Suspect]
     Active Substance: DIDANOSINE
     Indication: HIV INFECTION
     Dosage: UNK
     Route: 064
     Dates: start: 20050523, end: 20050908
  14. KALETRA [Suspect]
     Active Substance: LOPINAVIR\RITONAVIR
     Dosage: UNK
     Route: 064
     Dates: start: 20050908
  15. ALUVIA [Suspect]
     Active Substance: LOPINAVIR\RITONAVIR
     Indication: PRODUCT USED FOR UNKNOWN INDICATION
     Dosage: UNK
     Route: 064
     Dates: start: 20050908
  16. SUSTIVA [Suspect]
     Active Substance: EFAVIRENZ
     Indication: HIV INFECTION
     Dosage: 600 MILLIGRAM, ONCE A DAY
     Route: 064
     Dates: start: 20050523, end: 20050908
  17. EMTRIVA [Suspect]
     Active Substance: EMTRICITABINE
     Indication: HIV INFECTION
     Dosage: 200 MILLIGRAM, ONCE A DAY
     Route: 064
     Dates: start: 20050523, end: 20060216

REACTIONS (11)
  - Brain herniation [Fatal]
  - Meningomyelocele [Fatal]
  - Foetal exposure during pregnancy [Recovered/Resolved]
  - Spina bifida [Fatal]
  - Anencephaly [Fatal]
  - Foetal malformation [Not Recovered/Not Resolved]
  - Arnold-Chiari malformation [Not Recovered/Not Resolved]
  - Neural tube defect [Fatal]
  - Congenital hydrocephalus [Fatal]
  - Spinocerebellar disorder [Fatal]
  - Encephalocele [Unknown]

NARRATIVE: CASE EVENT DATE: 20050813
